FAERS Safety Report 7824036-3 (Version None)
Quarter: 2011Q4

REPORT INFORMATION
  Report Type: 
  Country: None (occurrence: None)
  Receive Date: 20111019
  Receipt Date: 20111010
  Transmission Date: 20120403
  Serious: Yes (Other)
  Sender: FDA-Public Use
  Company Number: PHFR2011IE04389

PATIENT
  Sex: Male

DRUGS (3)
  1. CLOZARIL [Suspect]
     Dosage: 75 MG, UNK
     Route: 048
     Dates: start: 20110718, end: 20110724
  2. VALPROIC ACID [Concomitant]
     Indication: AFFECTIVE DISORDER
     Dosage: 600 MG, UNK
     Route: 048
  3. CLOZARIL [Suspect]
     Indication: SCHIZOPHRENIA
     Dosage: UNK
     Route: 048
     Dates: start: 20070511

REACTIONS (4)
  - SCHIZOPHRENIA [None]
  - NEOPLASM MALIGNANT [None]
  - NEUTROPENIA [None]
  - EOSINOPHIL COUNT INCREASED [None]
